FAERS Safety Report 16380480 (Version 27)
Quarter: 2022Q3

REPORT INFORMATION
  Report Type: Spontaneous
  Country: GB (occurrence: GB)
  Receive Date: 20190601
  Receipt Date: 20220810
  Transmission Date: 20221027
  Serious: Yes (Hospitalization, Other)
  Sender: FDA-Public Use
  Company Number: GB-MHRA-ADR 24400559

PATIENT
  Age: 21 Year
  Sex: Female

DRUGS (69)
  1. BETAHISTINE [Suspect]
     Active Substance: BETAHISTINE
     Indication: Product used for unknown indication
     Dosage: 24 MILLIGRAM, ONCE A DAY (24 MG, 1X/DAY, DOSAGE FORM: UNSPECIFIED)
     Route: 048
  2. DOMPERIDONE [Suspect]
     Active Substance: DOMPERIDONE
     Indication: Product used for unknown indication
     Dosage: 10 MILLIGRAM, 3 TIMES A DAY (30 MILLIGRAM, ONCE A DAY)
     Route: 048
  3. DOMPERIDONE [Suspect]
     Active Substance: DOMPERIDONE
     Dosage: 30 MILLIGRAM, ONCE A DAY (30 MILLIGRAM, QD)
     Route: 048
  4. DOMPERIDONE [Suspect]
     Active Substance: DOMPERIDONE
     Dosage: 32 DOSAGE FORM, ONCE A DAY (32 DOSAGE FORM, QD)
     Route: 048
  5. GABAPENTIN [Suspect]
     Active Substance: GABAPENTIN
     Indication: Product used for unknown indication
     Dosage: 900 MILLIGRAM, ONCE A DAY
     Route: 048
  6. GABAPENTIN [Suspect]
     Active Substance: GABAPENTIN
     Dosage: 3600 MILLIGRAM, ONCE A DAY (3600 MILLIGRAM, ONCE DAILY (QD))
     Route: 048
  7. PREGABALIN [Suspect]
     Active Substance: PREGABALIN
     Indication: Product used for unknown indication
     Dosage: 1600 MILLIGRAM
     Route: 065
  8. PREGABALIN [Suspect]
     Active Substance: PREGABALIN
     Dosage: 450 MILLIGRAM
     Route: 065
     Dates: start: 200904, end: 200909
  9. PREGABALIN [Suspect]
     Active Substance: PREGABALIN
     Dosage: UNK
     Route: 048
  10. TRAMADOL [Suspect]
     Active Substance: TRAMADOL
     Indication: Abdominal pain
     Dosage: UNK, ONCE A DAY (FREQUENCY -1 IN 1 DAYS  DOSAGE FORM: UNSPECIFIED)
     Route: 065
  11. TRAMADOL [Suspect]
     Active Substance: TRAMADOL
     Dosage: 150 MG, QD 50 MG (3 IN 1 DAYS 50 MG, 3/DAY)
     Route: 065
     Dates: start: 200904, end: 200909
  12. TRAMADOL [Suspect]
     Active Substance: TRAMADOL
     Dosage: 450 MILLIGRAM, EVERY MONTH (450 MILLIGRAM, MONTHLY)
     Route: 048
     Dates: start: 200904, end: 200909
  13. TRAMADOL [Suspect]
     Active Substance: TRAMADOL
     Dosage: 400 MG, QD (100 MG, 4/DAY)
     Route: 065
     Dates: start: 200910, end: 200911
  14. TRAMADOL [Suspect]
     Active Substance: TRAMADOL
     Dosage: 150 MILLIGRAM, 3 TIMES A DAY(150 MG, QD)
     Route: 065
     Dates: start: 200909, end: 201011
  15. TRAMADOL [Suspect]
     Active Substance: TRAMADOL
     Dosage: 400 MILLIGRAM, ONCE A DAY, 400 MILLIGRAM, QD
     Route: 048
     Dates: start: 200909, end: 200911
  16. TRAMADOL [Suspect]
     Active Substance: TRAMADOL
     Dosage: 150 MILLIGRAM
     Route: 065
     Dates: start: 200909, end: 201011
  17. TRAMADOL [Suspect]
     Active Substance: TRAMADOL
     Dosage: 450 MG, QD (150 MG, TID (50 MG, 3/DAY))
     Route: 048
     Dates: start: 200904, end: 201009
  18. TRAMADOL [Suspect]
     Active Substance: TRAMADOL
     Dosage: 50 MILLIGRAM, 3 TIMES A DAY
     Route: 065
     Dates: start: 200909
  19. TRAMADOL [Suspect]
     Active Substance: TRAMADOL
     Dosage: 45 MILLIGRAM
     Route: 065
  20. TRAMADOL HYDROCHLORIDE [Suspect]
     Active Substance: TRAMADOL HYDROCHLORIDE
     Indication: Abdominal pain
     Dosage: 150 MILLIGRAM, ONCE A DAY
     Route: 065
     Dates: start: 200904, end: 200909
  21. TRAMADOL HYDROCHLORIDE [Suspect]
     Active Substance: TRAMADOL HYDROCHLORIDE
     Dosage: 400 MILLIGRAM,(100 MILLIGRAM, FOUR TIMES/DAY ) ONCE A DAY
     Route: 065
     Dates: start: 200910, end: 200911
  22. TRAMADOL HYDROCHLORIDE [Suspect]
     Active Substance: TRAMADOL HYDROCHLORIDE
     Dosage: 150 MILLIGRAM, (50 MILLIGRAM, 3 TIMES A DAY)ONCE A DAY
     Route: 065
     Dates: start: 200909, end: 201011
  23. TRAMADOL HYDROCHLORIDE [Suspect]
     Active Substance: TRAMADOL HYDROCHLORIDE
     Dosage: 50 MILLIGRAM, ONCE A DAY
     Route: 065
     Dates: start: 200904, end: 200909
  24. ACETAMINOPHEN [Suspect]
     Active Substance: ACETAMINOPHEN
     Indication: Product used for unknown indication
     Dosage: 32 DOSAGE FORM, (30MG/500MG )ONCE A DAY
     Route: 048
  25. CODEINE PHOSPHATE [Suspect]
     Active Substance: CODEINE PHOSPHATE
     Indication: Product used for unknown indication
     Dosage: 32 DOSAGE FORM, ONCE A DAY
     Route: 048
  26. AMITRIPTYLINE [Suspect]
     Active Substance: AMITRIPTYLINE
     Indication: Product used for unknown indication
     Dosage: 100 MILLIGRAM, ONCE A DAY (AT NIGHT)
     Route: 048
  27. AMITRIPTYLINE [Suspect]
     Active Substance: AMITRIPTYLINE
     Indication: Product used for unknown indication
     Dosage: 100 MILLIGRAM, ONCE A DAY, AT NIGHT ( (AT NIGHT))
     Route: 048
  28. COCODAMOL [Suspect]
     Active Substance: ACETAMINOPHEN\CODEINE PHOSPHATE
     Indication: Product used for unknown indication
     Dosage: 8 DOSAGE FORM, ONCE A DAY (30MG/500MG (ONCE DAILY))
     Route: 048
  29. COCODAMOL [Suspect]
     Active Substance: ACETAMINOPHEN\CODEINE PHOSPHATE
     Dosage: 32 DOSAGE FORM, (8 DOSAGE FORM, FOUR TIMES/DAY (30MG/500MG) )FOUR TIMES/DAY
     Route: 048
  30. COCODAMOL [Suspect]
     Active Substance: ACETAMINOPHEN\CODEINE PHOSPHATE
     Indication: Product used for unknown indication
     Dosage: 530 MILLIGRAM, ONCE A DAY (8 DOSAGE FORM, ONCE A DAY,30MG/500MG)
     Route: 048
  31. COCODAMOL [Suspect]
     Active Substance: ACETAMINOPHEN\CODEINE PHOSPHATE
     Dosage: 32 DOSAGE FORM, ONCE A DAY
     Route: 048
  32. COCODAMOL [Suspect]
     Active Substance: ACETAMINOPHEN\CODEINE PHOSPHATE
     Dosage: 32 DOSAGE FORM (32 DOSAGE FORM, QD, 8 DF, QID, 30MG/500MG, CO-CODAMOL, EFFEREVESCENT TABLET;)
     Route: 048
  33. COCODAMOL [Suspect]
     Active Substance: ACETAMINOPHEN\CODEINE PHOSPHATE
     Dosage: UNK (30MG/500MG, UNK)
     Route: 048
  34. COCODAMOL [Suspect]
     Active Substance: ACETAMINOPHEN\CODEINE PHOSPHATE
     Dosage: 32 DOSAGE FORM, QID, ZAPAIN
     Route: 048
  35. COCODAMOL [Suspect]
     Active Substance: ACETAMINOPHEN\CODEINE PHOSPHATE
     Dosage: 8 DOSAGE FORM, ONCE A DAY
     Route: 048
  36. COCODAMOL [Suspect]
     Active Substance: ACETAMINOPHEN\CODEINE PHOSPHATE
     Dosage: 8 DOSAGE FORM, QD, EFFERVESCENT TABLET, 32 DOSAGE FORM, QD, 8 DF, QID, 30MG/500MG, CO-CODAMOL, EFFER
     Route: 048
  37. COCODAMOL [Suspect]
     Active Substance: ACETAMINOPHEN\CODEINE PHOSPHATE
     Dosage: 32 DOSAGE FORM, QD, 30MG/500MG, 8 DF, QID, TABLET
     Route: 048
  38. CYCLIZINE [Suspect]
     Active Substance: CYCLIZINE
     Indication: Nausea
     Dosage: 50 MILLIGRAM, 3 TIMES A DAY (150 MILLIGRAM ONCE A DAY)
     Route: 065
  39. CYCLIZINE [Suspect]
     Active Substance: CYCLIZINE
     Indication: Vomiting
     Dosage: 50 MILLIGRAM, ONCE A DAY 2966
     Route: 065
  40. CYCLIZINE [Suspect]
     Active Substance: CYCLIZINE
     Dosage: 8 DOSAGE FORM, ONCE A DAY (8 DOSAGE FORM, QD)
     Route: 048
  41. CYCLIZINE [Suspect]
     Active Substance: CYCLIZINE
     Dosage: 100 MILLIGRAM, 3 TIMES A DAY
     Route: 065
  42. CYCLIZINE [Suspect]
     Active Substance: CYCLIZINE
     Dosage: 300 MILLIGRAM, ONCE A DAY (100 MILLIGRAM, TID)
     Route: 065
  43. CYCLIZINE [Suspect]
     Active Substance: CYCLIZINE
     Dosage: 150 MILLIGRAM, ONCE A DAY (50 MILLIGRAM, TID)
     Route: 048
  44. CYCLIZINE [Suspect]
     Active Substance: CYCLIZINE
     Dosage: 150 MILLIGRAM (150 MG, QD, 50 MG, 3/DAY)
     Route: 048
  45. CYCLIZINE [Suspect]
     Active Substance: CYCLIZINE
     Dosage: 100 MILLIGRAM, 3 TIMES A DAY
     Route: 065
  46. CYCLIZINE [Suspect]
     Active Substance: CYCLIZINE
     Dosage: 50 MILLIGRAM, ONCE A DAY
     Route: 065
  47. CYCLIZINE [Suspect]
     Active Substance: CYCLIZINE
     Dosage: 8 DOSAGE FORM, ONCE A DAY
     Route: 048
  48. CYCLIZINE [Suspect]
     Active Substance: CYCLIZINE
     Dosage: UNK, DOSAGE FORM: UNSPECIFIED
     Route: 065
  49. CYCLIZINE [Suspect]
     Active Substance: CYCLIZINE
     Dosage: 50 MILLIGRAM, 3 TIMES A DAY
     Route: 065
  50. CYCLIZINE [Suspect]
     Active Substance: CYCLIZINE
     Dosage: 100 DOSAGE FORM, ONCE A DAY
     Route: 065
  51. METOCLOPRAMIDE [Suspect]
     Active Substance: METOCLOPRAMIDE
     Indication: Abdominal pain
     Dosage: 10 MILLIGRAM, 3 TIMES A DAY (10 MILLIGRAM, Q8HR)
     Route: 048
  52. METOCLOPRAMIDE [Suspect]
     Active Substance: METOCLOPRAMIDE
     Indication: Vomiting
     Dosage: 50 MILLIGRAM, ONCE A DAY (50 MILLIGRAM, QD)
     Route: 048
  53. METOCLOPRAMIDE [Suspect]
     Active Substance: METOCLOPRAMIDE
     Dosage: 30 MILLIGRAM, ONCE A DAY (10 MILLIGRAM, TID)
     Route: 048
     Dates: start: 200907
  54. PRUCALOPRIDE [Suspect]
     Active Substance: PRUCALOPRIDE
     Indication: Product used for unknown indication
     Dosage: 2 MILLIGRAM, ONCE A DAY (2 MILLIGRAM, QD)
     Route: 048
  55. ACETAMINOPHEN\CODEINE PHOSPHATE [Suspect]
     Active Substance: ACETAMINOPHEN\CODEINE PHOSPHATE
     Indication: Product used for unknown indication
     Dosage: 8 DOSAGE FORM, ONCE A DAY(30MG/500MG)
     Route: 048
  56. ACETAMINOPHEN\CODEINE PHOSPHATE [Suspect]
     Active Substance: ACETAMINOPHEN\CODEINE PHOSPHATE
     Dosage: 32 DOSAGE FORM, ONCE A DAY
     Route: 048
  57. HYDROCORTISONE [Concomitant]
     Active Substance: HYDROCORTISONE
     Indication: Product used for unknown indication
     Dosage: 150 MILLIGRAM, 3 TIMES A DAY (150 MG TID)
     Route: 065
  58. HYDROCORTISONE [Concomitant]
     Active Substance: HYDROCORTISONE
     Dosage: 150 MILLIGRAM, 3 TIMES A DAY (450 MG DAILY)
     Route: 048
     Dates: start: 200904, end: 200909
  59. HYDROCORTISONE [Concomitant]
     Active Substance: HYDROCORTISONE
     Dosage: 450 MG, QD (150 MG, TID)
     Route: 048
     Dates: start: 200904, end: 200909
  60. HYDROCORTISONE [Concomitant]
     Active Substance: HYDROCORTISONE
     Dosage: 400 MG, QID
     Route: 048
     Dates: start: 200910, end: 200911
  61. HYDROCORTISONE [Concomitant]
     Active Substance: HYDROCORTISONE
     Dosage: 1600 MILLIGRAM, ONCE A DAY
     Route: 048
     Dates: start: 200910, end: 200911
  62. IBUPROFEN [Concomitant]
     Active Substance: IBUPROFEN
     Indication: Abdominal pain
     Dosage: 50 MILLIGRAM, 3 TIMES A DAY (400 MG, 3/DAY,50 MILLIGRAM, Q8HR)
     Route: 065
  63. IBUPROFEN [Concomitant]
     Active Substance: IBUPROFEN
     Dosage: 1200 MILLIGRAM, 3 TIMES A DAY
     Route: 065
  64. IBUPROFEN [Concomitant]
     Active Substance: IBUPROFEN
     Dosage: 400 MILLIGRAM, 3 TIMES A DAY (400 MG, TID (400 MG, 3/DAY);)
     Route: 065
  65. LANSOPRAZOLE [Concomitant]
     Active Substance: LANSOPRAZOLE
     Indication: Product used for unknown indication
     Dosage: 30 MILLIGRAM, TWO TIMES A DAY (60 MILLIGRAM, DAILY)
     Route: 048
  66. LANSOPRAZOLE [Concomitant]
     Active Substance: LANSOPRAZOLE
     Dosage: 60 MILLIGRAM, ONCE A DAY
     Route: 048
  67. OMEPRAZOLE [Concomitant]
     Active Substance: OMEPRAZOLE
     Indication: Dyspepsia
     Dosage: 40 MILLIGRAM, ONCE A DAY
     Route: 065
  68. SUMATRIPTAN [Concomitant]
     Active Substance: SUMATRIPTAN
     Indication: Migraine
     Dosage: 50 MILLIGRAM, ONCE A DAY (50MG, QD)
     Route: 065
  69. OMEPRAZOLE [Concomitant]
     Active Substance: OMEPRAZOLE
     Indication: Dyspepsia
     Dosage: 40 MILLIGRAM, ONCE A DAY(40 MG, QD)
     Route: 065

REACTIONS (11)
  - Pituitary tumour benign [Recovering/Resolving]
  - Hyperprolactinaemia [Recovering/Resolving]
  - Adrenal insufficiency [Recovered/Resolved]
  - Secondary adrenocortical insufficiency [Recovered/Resolved]
  - Vision blurred [Unknown]
  - Abdominal pain [Recovered/Resolved]
  - Dizziness [Recovered/Resolved]
  - Headache [Recovered/Resolved]
  - Vomiting [Recovered/Resolved]
  - Lethargy [Recovered/Resolved]
  - Drug ineffective [Unknown]

NARRATIVE: CASE EVENT DATE: 20091101
